FAERS Safety Report 9039465 (Version 2)
Quarter: 2013Q1

REPORT INFORMATION
  Report Type: Spontaneous
  Country: US (occurrence: US)
  Receive Date: 20130129
  Receipt Date: 20130129
  Transmission Date: 20140127
  Serious: Yes (Life-Threatening, Hospitalization, Other)
  Sender: FDA-Public Use
  Company Number: US-BAYER-2012-131037

PATIENT
  Age: 62 Year
  Sex: Female
  Weight: 130.95 kg

DRUGS (29)
  1. XARELTO [Suspect]
     Indication: THROMBOSIS PROPHYLAXIS
     Dosage: 10 MG, QD
     Route: 048
     Dates: start: 20121023, end: 20121024
  2. XARELTO [Suspect]
     Indication: KNEE ARTHROPLASTY
  3. XARELTO [Suspect]
     Indication: ANTICOAGULANT THERAPY
  4. LOVENOX [Suspect]
     Indication: ANTICOAGULANT THERAPY
     Dosage: 30 MG, BID
     Route: 065
  5. LOVENOX [Suspect]
     Indication: ANTICOAGULANT THERAPY
     Route: 065
  6. ACETYLSALICYLIC ACID [Suspect]
     Indication: ANTICOAGULANT THERAPY
     Dosage: 325 MG, UNK
  7. COUMADIN [Suspect]
     Indication: ANTICOAGULANT THERAPY
     Route: 065
  8. ALLOPURINOL [Concomitant]
     Route: 048
  9. INDOMETHACIN [Concomitant]
     Dosage: 50 MG, QD
     Route: 048
  10. NORVASC [Concomitant]
     Dosage: 10 MG, QD
     Route: 048
  11. SIMVASTATIN [Concomitant]
     Dosage: 20 MG, QD
     Route: 048
  12. LOTENSIN [Concomitant]
     Dosage: 20 MG, QD
     Route: 048
  13. TORADOL [Concomitant]
     Indication: PRODUCT USED FOR UNKNOWN INDICATION
     Dosage: 30 MG, UNK
     Route: 042
     Dates: start: 20121022
  14. TYLENOL [PARACETAMOL] [Concomitant]
     Indication: PYREXIA
     Dosage: 650 MG, UNK
     Route: 048
  15. TYLENOL [PARACETAMOL] [Concomitant]
     Indication: PAIN
  16. VICODIN [Concomitant]
     Indication: PAIN
     Route: 048
  17. REGLAN [Concomitant]
     Indication: PAIN
     Dosage: 10 MG, UNK
     Route: 042
  18. ZOFRAN [Concomitant]
     Indication: NAUSEA
     Dosage: 4 MG, UNK
     Route: 042
  19. VISTARIL [Concomitant]
     Indication: PAIN
     Dosage: 50 MG, UNK
     Route: 048
  20. FERROUS SULFATE [Concomitant]
     Dosage: 325 MG, BID
     Route: 048
  21. AMBIEN [Concomitant]
     Dosage: 5 MG, UNK
     Route: 048
  22. DULCOLAX [BISACODYL] [Concomitant]
     Route: 065
  23. MAGNESIUM HYDROXIDE [Concomitant]
     Dosage: 1 DF, UNK
     Route: 065
  24. COLACE [Concomitant]
     Dosage: 100 MG, BID
     Route: 065
  25. MORPHINE [Concomitant]
     Route: 065
  26. MEPERIDINE [Concomitant]
     Route: 065
  27. FENTANYL [Concomitant]
     Dosage: 25 ?G, UNK
     Route: 065
  28. BENADRYL [Concomitant]
     Indication: PRURITUS
     Route: 065
  29. NUBAIN [Concomitant]
     Indication: PRURITUS
     Route: 042

REACTIONS (1)
  - Pulmonary embolism [Recovering/Resolving]
